FAERS Safety Report 23246337 (Version 1)
Quarter: 2023Q4

REPORT INFORMATION
  Report Type: Spontaneous
  Country: US (occurrence: US)
  Receive Date: 20231130
  Receipt Date: 20231130
  Transmission Date: 20240110
  Serious: No
  Sender: FDA-Public Use
  Company Number: US-SA-2023SA362044

PATIENT
  Age: 17 Month
  Sex: Female

DRUGS (8)
  1. XENPOZYME [Suspect]
     Active Substance: OLIPUDASE ALFA-RPCP
     Indication: Niemann-Pick disease
     Dosage: 0.03 MG/KG, QOW
     Route: 065
     Dates: start: 20221227, end: 20221227
  2. XENPOZYME [Suspect]
     Active Substance: OLIPUDASE ALFA-RPCP
     Dosage: 0.1 MG/KG, QOW
     Route: 065
     Dates: start: 20230109, end: 20230109
  3. XENPOZYME [Suspect]
     Active Substance: OLIPUDASE ALFA-RPCP
     Dosage: 0.1 MG/KG, QOW
     Route: 065
     Dates: start: 20230123, end: 20230123
  4. XENPOZYME [Suspect]
     Active Substance: OLIPUDASE ALFA-RPCP
     Dosage: 0.3 MG/KG, QOW
     Route: 065
     Dates: start: 20230208, end: 20230208
  5. XENPOZYME [Suspect]
     Active Substance: OLIPUDASE ALFA-RPCP
     Dosage: 0.3 MG/KG, QOW
     Route: 065
     Dates: start: 20230220, end: 20230220
  6. XENPOZYME [Suspect]
     Active Substance: OLIPUDASE ALFA-RPCP
     Dosage: 0.3 MG/KG, QOW
     Route: 065
     Dates: start: 20230306, end: 20230306
  7. XENPOZYME [Suspect]
     Active Substance: OLIPUDASE ALFA-RPCP
     Dosage: 0.6 MG/KG, QOW
     Route: 065
     Dates: start: 20230320, end: 20230320
  8. XENPOZYME [Suspect]
     Active Substance: OLIPUDASE ALFA-RPCP
     Dosage: 0.3 MG/KG, QOW
     Route: 065
     Dates: start: 20230404, end: 20230404

REACTIONS (1)
  - Illness [Unknown]

NARRATIVE: CASE EVENT DATE: 20230101
